FAERS Safety Report 6802134-0 (Version None)
Quarter: 2010Q2

REPORT INFORMATION
  Report Type: 
  Country: None (occurrence: None)
  Receive Date: 20100629
  Receipt Date: 20071222
  Transmission Date: 20101027
  Serious: No
  Sender: FDA-Public Use
  Company Number: US-PFIZER INC-2003110966

PATIENT
  Sex: Male
  Weight: 79.38 kg

DRUGS (6)
  1. TIKOSYN [Suspect]
     Indication: ATRIAL FIBRILLATION
     Dosage: BID
     Route: 048
     Dates: start: 20020101
  2. ALTACE [Concomitant]
     Route: 048
  3. PREVACID [Concomitant]
     Route: 048
  4. MAGNESIUM [Concomitant]
     Route: 048
  5. LIPITOR [Concomitant]
     Route: 048
  6. WARFARIN [Concomitant]
     Route: 048

REACTIONS (3)
  - EYE PAIN [None]
  - EYELID INFECTION [None]
  - SINUSITIS [None]
